FAERS Safety Report 5746189-3 (Version None)
Quarter: 2008Q2

REPORT INFORMATION
  Report Type: 
  Country: None (occurrence: None)
  Receive Date: 20080522
  Receipt Date: 20080507
  Transmission Date: 20081010
  Serious: Yes (Death, Other)
  Sender: FDA-Public Use
  Company Number: GB-BAYER-200818219GPV

PATIENT

DRUGS (7)
  1. CAMPATH [Suspect]
     Indication: B-CELL LYMPHOMA
     Dosage: AS USED: 10 MG
  2. CAMPATH [Suspect]
     Dosage: AS USED: 20 MG
  3. CARMUSTINE [Concomitant]
     Indication: B-CELL LYMPHOMA
  4. CYTARABINE [Concomitant]
     Indication: B-CELL LYMPHOMA
     Dosage: TOTAL DAILY DOSE: 400 MG/M2
  5. ETOPOSIDE [Concomitant]
     Indication: B-CELL LYMPHOMA
  6. MELPHALAN [Concomitant]
     Indication: B-CELL LYMPHOMA
  7. CYCLOSPORINE [Concomitant]
     Indication: PROPHYLAXIS AGAINST GRAFT VERSUS HOST DISEASE
     Route: 042

REACTIONS (14)
  - ADENOVIRUS INFECTION [None]
  - ASPERGILLOSIS [None]
  - BACTERIAL SEPSIS [None]
  - BK VIRUS INFECTION [None]
  - CYTOMEGALOVIRUS INFECTION [None]
  - CYTOMEGALOVIRUS SYNDROME [None]
  - HERPES ZOSTER [None]
  - MULTI-ORGAN FAILURE [None]
  - PARAINFLUENZAE VIRUS INFECTION [None]
  - PNEUMONIA CYTOMEGALOVIRAL [None]
  - PSEUDOMONAS INFECTION [None]
  - RESPIRATORY SYNCYTIAL VIRUS INFECTION [None]
  - SPLENIC RUPTURE [None]
  - THROMBOTIC THROMBOCYTOPENIC PURPURA [None]
